FAERS Safety Report 15515224 (Version 1)
Quarter: 2018Q4

REPORT INFORMATION
  Report Type: Spontaneous
  Country: US (occurrence: US)
  Receive Date: 20181017
  Receipt Date: 20181017
  Transmission Date: 20190205
  Serious: Yes (Other)
  Sender: FDA-Public Use
  Company Number: US-ORCHID HEALTHCARE-2056281

PATIENT
  Sex: Female

DRUGS (3)
  1. UNSPECIFIED INJECTION [Suspect]
     Active Substance: UNSPECIFIED INGREDIENT
     Route: 065
  2. UNSPECIFIED PAIN MEDICATIONS [Concomitant]
     Active Substance: UNSPECIFIED INGREDIENT
     Route: 065
  3. SUMATRIPTAN. [Suspect]
     Active Substance: SUMATRIPTAN
     Indication: MIGRAINE
     Route: 048
     Dates: start: 2017

REACTIONS (5)
  - Aneurysm [Unknown]
  - Cerebrovascular accident [Unknown]
  - Discomfort [Unknown]
  - Road traffic accident [Unknown]
  - Limb injury [Unknown]

NARRATIVE: CASE EVENT DATE: 2017
